FAERS Safety Report 7964561 (Version 3)
Quarter: 2016Q3

REPORT INFORMATION
  Report Type: Spontaneous
  Country: US (occurrence: US)
  Receive Date: 20110527
  Receipt Date: 20160830
  Transmission Date: 20161109
  Serious: Yes (Hospitalization, Other)
  Sender: FDA-Public Use
  Company Number: US-ROCHE-778930

PATIENT
  Age: 76 Year
  Sex: Female

DRUGS (14)
  1. ACYCLOVIR. [Concomitant]
     Active Substance: ACYCLOVIR
  2. BONIVA [Suspect]
     Active Substance: IBANDRONATE SODIUM
     Indication: OSTEOPOROSIS
     Route: 048
     Dates: start: 20051229, end: 200904
  3. DIDRONEL [Suspect]
     Active Substance: ETIDRONATE DISODIUM
     Indication: OSTEOPOROSIS
     Route: 048
     Dates: start: 19931221, end: 19951227
  4. CEPHALEXIN. [Concomitant]
     Active Substance: CEPHALEXIN
  5. ACTONEL [Suspect]
     Active Substance: RISEDRONATE SODIUM
     Indication: OSTEOPOROSIS
     Route: 048
     Dates: start: 20021030, end: 2005
  6. COZAAR [Concomitant]
     Active Substance: LOSARTAN POTASSIUM
  7. LIDODERM [Concomitant]
     Active Substance: LIDOCAINE
  8. BONIVA [Suspect]
     Active Substance: IBANDRONATE SODIUM
     Indication: OSTEOPENIA
  9. FOSAMAX [Suspect]
     Active Substance: ALENDRONATE SODIUM
     Indication: OSTEOPENIA
     Route: 048
     Dates: start: 20010525, end: 200207
  10. ACTONEL [Suspect]
     Active Substance: RISEDRONATE SODIUM
     Indication: OSTEOPENIA
  11. HYDROCODONE BITARTRATE AND ACETAMINOPHEN [Concomitant]
     Active Substance: ACETAMINOPHEN\HYDROCODONE BITARTRATE
  12. FOSAMAX [Suspect]
     Active Substance: ALENDRONATE SODIUM
     Indication: OSTEOPOROSIS
     Route: 048
     Dates: start: 199601, end: 20010525
  13. DIDRONEL [Suspect]
     Active Substance: ETIDRONATE DISODIUM
     Indication: OSTEOPENIA
  14. ARTHROTEC [Concomitant]
     Active Substance: DICLOFENAC SODIUM\MISOPROSTOL

REACTIONS (9)
  - Depression [Unknown]
  - Fall [Unknown]
  - Abdominal discomfort [Unknown]
  - Low turnover osteopathy [Unknown]
  - Anxiety [Unknown]
  - Stress fracture [Unknown]
  - Femur fracture [Unknown]
  - Emotional distress [Unknown]
  - Anxiety [Unknown]

NARRATIVE: CASE EVENT DATE: 20080505
